FAERS Safety Report 5327807-0 (Version None)
Quarter: 2007Q2

REPORT INFORMATION
  Report Type: 
  Country: None (occurrence: None)
  Receive Date: 20070517
  Receipt Date: 20070511
  Transmission Date: 20071010
  Serious: Yes (Other)
  Sender: FDA-Public Use
  Company Number: BR-JNJFOC-20070503340

PATIENT
  Age: 22 Year
  Sex: Female
  Weight: 75 kg

DRUGS (2)
  1. EXTRA STRENGTH TYLENOL [Suspect]
     Route: 048
  2. EXTRA STRENGTH TYLENOL [Suspect]
     Indication: DENGUE FEVER
     Route: 048

REACTIONS (3)
  - HEPATIC ENZYME INCREASED [None]
  - MALAISE [None]
  - RASH [None]
